FAERS Safety Report 6413620-X (Version None)
Quarter: 2009Q4

REPORT INFORMATION
  Report Type: 
  Country: None (occurrence: None)
  Receive Date: 20091021
  Receipt Date: 20091014
  Transmission Date: 20100525
  Serious: Yes (Death)
  Sender: FDA-Public Use
  Company Number: 2009EU003202

PATIENT
  Sex: Male

DRUGS (4)
  1. PROGRAF [Suspect]
     Indication: RENAL TRANSPLANT
     Dosage: D, ORAL
     Route: 048
     Dates: start: 20050701
  2. CLARITHROMYCIN [Concomitant]
  3. DELTACORTRIL [Concomitant]
  4. CLONAMOX (AMOXICILLIN TRIHYDRATE) [Concomitant]

REACTIONS (1)
  - MALAISE [None]
